FAERS Safety Report 11144510 (Version 1)
Quarter: 2015Q2

REPORT INFORMATION
  Report Type: Spontaneous
  Country: IT (occurrence: IT)
  Receive Date: 20150528
  Receipt Date: 20150528
  Transmission Date: 20150821
  Serious: Yes (Other)
  Sender: FDA-Public Use
  Company Number: IT-MYLANLABS-2015M1017506

PATIENT

DRUGS (4)
  1. VINORELBINE [Suspect]
     Active Substance: VINORELBINE\VINORELBINE TARTRATE
     Indication: GLIOMA
     Dosage: 20 MG/M2 WEEKLY, THEN 25 MG/M2 EVERY 2 WEEKS
     Route: 065
  2. NIMOTUZUMAB [Suspect]
     Active Substance: NIMOTUZUMAB
     Dosage: 100 MG/M2 EVERY 2 WEEKS
     Route: 065
  3. VINORELBINE [Suspect]
     Active Substance: VINORELBINE\VINORELBINE TARTRATE
     Dosage: 25 MG/M2 EVERY 2 WEEKS
     Route: 065
  4. NIMOTUZUMAB [Suspect]
     Active Substance: NIMOTUZUMAB
     Indication: GLIOMA
     Dosage: 100 MG/M2 WEEKLY, THEN EVERY 2 WEEKS
     Route: 065

REACTIONS (1)
  - Wernicke^s encephalopathy [Recovering/Resolving]
